FAERS Safety Report 5321183-5 (Version None)
Quarter: 2007Q2

REPORT INFORMATION
  Report Type: 
  Country: None (occurrence: None)
  Receive Date: 20070510
  Receipt Date: 20070508
  Transmission Date: 20071010
  Serious: Yes (Disabling)
  Sender: FDA-Public Use
  Company Number: US-BRISTOL-MYERS SQUIBB COMPANY-13725536

PATIENT
  Age: 51 Year
  Sex: Male

DRUGS (7)
  1. ABILIFY [Suspect]
     Indication: PSYCHOTIC DISORDER
     Dosage: 15 MG X 4 DAYS 5 MG X 1 DAY 2.5 MG X 3 DAYS THEN D/C'D
     Route: 048
     Dates: end: 20060402
  2. ABILIFY [Suspect]
     Indication: BIPOLAR DISORDER
     Dosage: 15 MG X 4 DAYS 5 MG X 1 DAY 2.5 MG X 3 DAYS THEN D/C'D
     Route: 048
     Dates: end: 20060402
  3. SEROQUEL [Concomitant]
     Dates: start: 20000101
  4. REMERON [Concomitant]
     Dates: start: 20060301, end: 20061001
  5. KLONOPIN [Concomitant]
  6. LAMICTAL [Concomitant]
     Dates: start: 20050601
  7. BUPROPION HYDROCHLORIDE [Concomitant]

REACTIONS (1)
  - HICCUPS [None]
